FAERS Safety Report 4714378-2 (Version None)
Quarter: 2005Q3

REPORT INFORMATION
  Report Type: 
  Country: None (occurrence: None)
  Receive Date: 20050712
  Receipt Date: 20050705
  Transmission Date: 20060218
  Serious: Yes (Hospitalization)
  Sender: FDA-Public Use
  Company Number: 200510465BFR

PATIENT
  Age: 58 Year
  Sex: Male

DRUGS (8)
  1. MOXIFLOXACIN HYDROCHLORIDE [Suspect]
     Indication: LUNG DISORDER
     Dosage: ORAL
     Route: 048
     Dates: start: 20041221, end: 20050117
  2. MOXIFLOXACIN HYDROCHLORIDE [Suspect]
     Indication: MYCOBACTERIAL INFECTION
     Dosage: ORAL
     Route: 048
     Dates: start: 20041221, end: 20050117
  3. DEXAMBUTOL (ETHAMBUTOL DIHYDROCHLORIDE) [Suspect]
     Indication: LUNG DISORDER
     Dosage: ORAL
     Route: 048
     Dates: start: 20041221, end: 20050117
  4. DEXAMBUTOL (ETHAMBUTOL DIHYDROCHLORIDE) [Suspect]
     Indication: MYCOBACTERIAL INFECTION
     Dosage: ORAL
     Route: 048
     Dates: start: 20041221, end: 20050117
  5. CLARITHROMYCIN [Suspect]
     Indication: LUNG DISORDER
  6. CLARITHROMYCIN [Suspect]
     Indication: MYCOBACTERIAL INFECTION
  7. ANSATIPINE (RIFABUTIN) [Suspect]
     Indication: LUNG DISORDER
  8. ANSATIPINE (RIFABUTIN) [Suspect]
     Indication: MYCOBACTERIAL INFECTION

REACTIONS (4)
  - MYOCARDIAL INFARCTION [None]
  - NEUTROPENIA [None]
  - RECTAL HAEMORRHAGE [None]
  - THROMBOCYTOPENIA [None]
